FAERS Safety Report 17685132 (Version 1)
Quarter: 2020Q2

REPORT INFORMATION
  Report Type: Spontaneous
  Country: US (occurrence: US)
  Receive Date: 20200417
  Receipt Date: 20200417
  Transmission Date: 20200714
  Serious: No
  Sender: FDA-Public Use
  Company Number: None

PATIENT
  Age: 54 Year
  Sex: Female

DRUGS (1)
  1. VOSEVI [Suspect]
     Active Substance: SOFOSBUVIR\VELPATASVIR\VOXILAPREVIR
     Dosage: ?          OTHER DOSE:400/100MG;?
     Route: 058
     Dates: start: 20200211

REACTIONS (1)
  - Fatigue [None]

NARRATIVE: CASE EVENT DATE: 20200311
